FAERS Safety Report 16695113 (Version 1)
Quarter: 2019Q3

REPORT INFORMATION
  Report Type: Report from Study
  Country: BR (occurrence: BR)
  Receive Date: 20190813
  Receipt Date: 20190813
  Transmission Date: 20191004
  Serious: Yes (Hospitalization)
  Sender: FDA-Public Use
  Company Number: BR-ELI_LILLY_AND_COMPANY-BR201908003886

PATIENT
  Age: 68 Year
  Sex: Male

DRUGS (1)
  1. CETUXIMAB. [Suspect]
     Active Substance: CETUXIMAB
     Indication: TONGUE NEOPLASM
     Dosage: UNK UNK, UNKNOWN
     Route: 042
     Dates: start: 20190726

REACTIONS (8)
  - Heart rate irregular [Unknown]
  - Body temperature fluctuation [Unknown]
  - Tremor [Unknown]
  - Loss of consciousness [Unknown]
  - Oxygen saturation decreased [Unknown]
  - Hyperhidrosis [Unknown]
  - Blood pressure fluctuation [Unknown]
  - Pallor [Unknown]

NARRATIVE: CASE EVENT DATE: 20190726
